FAERS Safety Report 18629143 (Version 1)
Quarter: 2020Q4

REPORT INFORMATION
  Report Type: Spontaneous
  Country: US (occurrence: US)
  Receive Date: 20201217
  Receipt Date: 20201217
  Transmission Date: 20210114
  Serious: Yes (Other)
  Sender: FDA-Public Use
  Company Number: US-ASTRAZENECA-2020SF65598

PATIENT
  Age: 25436 Day
  Sex: Female
  Weight: 41.7 kg

DRUGS (1)
  1. PULMICORT FLEXHALER [Suspect]
     Active Substance: BUDESONIDE
     Indication: CRITICAL ILLNESS
     Route: 055
     Dates: start: 2017

REACTIONS (7)
  - Intentional device misuse [Unknown]
  - Bronchiectasis [Not Recovered/Not Resolved]
  - Device use issue [Unknown]
  - Cough [Unknown]
  - Device malfunction [Unknown]
  - Chronic respiratory disease [Not Recovered/Not Resolved]
  - Pneumonitis [Not Recovered/Not Resolved]

NARRATIVE: CASE EVENT DATE: 20201208
